FAERS Safety Report 7426617-8 (Version None)
Quarter: 2011Q2

REPORT INFORMATION
  Report Type: 
  Country: None (occurrence: None)
  Receive Date: 20110413
  Receipt Date: 20110331
  Transmission Date: 20111010
  Serious: Yes (Other)
  Sender: FDA-Public Use
  Company Number: 2011P1005544

PATIENT
  Age: 70 Year
  Sex: Female
  Weight: 65.7716 kg

DRUGS (11)
  1. FLAX SEED [Concomitant]
  2. FENTANYL PATCH 25 MCG/HR (NO PREF. NAME) [Suspect]
     Indication: RESTLESS LEGS SYNDROME
     Dosage: 1 PATCH; ; TDER
     Route: 062
     Dates: start: 20080101, end: 20090101
  3. FENTANYL PATCH 25 MCG/HR (NO PREF. NAME) [Suspect]
     Indication: NECK PAIN
     Dosage: 1 PATCH; ; TDER
     Route: 062
     Dates: start: 20080101, end: 20090101
  4. FENTANYL PATCH 25 MCG/HR (NO PREF. NAME) [Suspect]
     Indication: BACK PAIN
     Dosage: 1 PATCH; ; TDER
     Route: 062
     Dates: start: 20080101, end: 20090101
  5. FISH OIL [Concomitant]
  6. ASPIRIN [Concomitant]
  7. FENTANYL [Suspect]
     Indication: BACK PAIN
     Dosage: 1 PATCH; Q48H; TDER
     Route: 062
     Dates: start: 20090101
  8. FENTANYL [Suspect]
     Indication: NECK PAIN
     Dosage: 1 PATCH; Q48H; TDER
     Route: 062
     Dates: start: 20090101
  9. FENTANYL [Suspect]
     Indication: RESTLESS LEGS SYNDROME
     Dosage: 1 PATCH; Q48H; TDER
     Route: 062
     Dates: start: 20090101
  10. VITAMIN B-12 [Concomitant]
  11. VITAMIN D 1000 MG [Concomitant]

REACTIONS (1)
  - TRANSIENT ISCHAEMIC ATTACK [None]
